FAERS Safety Report 19082588 (Version 1)
Quarter: 2021Q1

REPORT INFORMATION
  Report Type: Spontaneous
  Country: US (occurrence: US)
  Receive Date: 20210331
  Receipt Date: 20210331
  Transmission Date: 20210420
  Serious: Yes (Life-Threatening, Hospitalization)
  Sender: FDA-Public Use
  Company Number: None

PATIENT
  Age: 67 Year
  Sex: Male
  Weight: 88 kg

DRUGS (1)
  1. IOHEXOL (IOHEXOL 755MG/ML INJ) [Suspect]
     Active Substance: IOHEXOL
     Indication: SCAN WITH CONTRAST
     Route: 042
     Dates: start: 202103, end: 20210325

REACTIONS (7)
  - Hypertension [None]
  - Anaphylactic reaction [None]
  - Dyspnoea [None]
  - Dysphagia [None]
  - Hypotension [None]
  - Speech disorder [None]
  - Angioedema [None]

NARRATIVE: CASE EVENT DATE: 20210322
